FAERS Safety Report 4318344-0 (Version None)
Quarter: 2004Q1

REPORT INFORMATION
  Report Type: 
  Country: None (occurrence: None)
  Receive Date: 20040315
  Receipt Date: 20031125
  Transmission Date: 20041129
  Serious: No
  Sender: FDA-Public Use
  Company Number: 2003188073US

PATIENT
  Age: 56 Year
  Sex: Female

DRUGS (2)
  1. BEXTRA [Suspect]
     Indication: ARTHRALGIA
     Dosage: 10 MG,
     Dates: end: 20030101
  2. FOSAMAX [Concomitant]

REACTIONS (1)
  - NAIL DISORDER [None]
